FAERS Safety Report 5444174-2 (Version None)
Quarter: 2007Q3

REPORT INFORMATION
  Report Type: 
  Country: None (occurrence: None)
  Receive Date: 20070904
  Receipt Date: 20070904
  Transmission Date: 20080115
  Serious: Yes (Other)
  Sender: FDA-Public Use
  Company Number: None

PATIENT
  Sex: Male
  Weight: 94.3482 kg

DRUGS (2)
  1. KETEK [Suspect]
     Indication: BRONCHITIS
     Dosage: 400 MG BID ORAL
     Route: 048
     Dates: start: 20070829, end: 20070901
  2. PROZAC [Concomitant]

REACTIONS (3)
  - CHROMATURIA [None]
  - COUGH [None]
  - VOMITING [None]
